FAERS Safety Report 8875019 (Version 1)
Quarter: 2012Q4

REPORT INFORMATION
  Report Type: 
  Country: US (occurrence: US)
  Receive Date: 20121023
  Receipt Date: 20121023
  Transmission Date: 20130627
  Serious: Yes (Hospitalization)
  Sender: FDA-Public Use
  Company Number: US-PFIZER INC-2012264005

PATIENT
  Age: 34 Year
  Sex: Female
  Weight: 99.77 kg

DRUGS (3)
  1. LYRICA [Suspect]
     Indication: NEUROPATHY PERIPHERAL
     Dosage: UNK
     Dates: start: 2011
  2. BACLOFEN [Concomitant]
     Indication: MULTIPLE SCLEROSIS
     Dosage: 30 mg, as needed
  3. ZANAFLEX [Concomitant]
     Indication: MULTIPLE SCLEROSIS
     Dosage: 8 mg, as needed

REACTIONS (2)
  - Staphylococcal infection [Unknown]
  - Oedema peripheral [Not Recovered/Not Resolved]
